FAERS Safety Report 6900819-9 (Version None)
Quarter: 2010Q3

REPORT INFORMATION
  Report Type: 
  Country: None (occurrence: None)
  Receive Date: 20100803
  Receipt Date: 20100726
  Transmission Date: 20110219
  Serious: Yes (Other)
  Sender: FDA-Public Use
  Company Number: US-RB-012831-10

PATIENT
  Age: 49 Year
  Sex: Male

DRUGS (2)
  1. SUBOXONE [Suspect]
     Indication: DRUG DEPENDENCE
     Route: 060
     Dates: start: 20100703
  2. TYLENOL SINUS [Suspect]
     Indication: SINUS HEADACHE
     Dosage: 2 TABLETS
     Route: 048
     Dates: start: 20100701, end: 20100701

REACTIONS (8)
  - ABDOMINAL DISCOMFORT [None]
  - AMNESIA [None]
  - FATIGUE [None]
  - FEELING HOT [None]
  - HALLUCINATION, VISUAL [None]
  - HEADACHE [None]
  - MALAISE [None]
  - SINUS HEADACHE [None]
